FAERS Safety Report 21652318 (Version 2)
Quarter: 2023Q1

REPORT INFORMATION
  Report Type: Spontaneous
  Country: AR (occurrence: AR)
  Receive Date: 20221128
  Receipt Date: 20230317
  Transmission Date: 20230418
  Serious: Yes (Other)
  Sender: FDA-Public Use
  Company Number: AR-PFIZER INC-PV202200109805

PATIENT
  Age: 48 Year
  Sex: Female

DRUGS (1)
  1. XELJANZ [Suspect]
     Active Substance: TOFACITINIB CITRATE
     Indication: Rheumatoid arthritis
     Dosage: 5 MG, 2X/DAY
     Dates: start: 20160104, end: 20221217

REACTIONS (5)
  - Eye operation [Recovered/Resolved]
  - Cervix operation [Recovered/Resolved]
  - Intervertebral disc operation [Recovered/Resolved]
  - Infection [Unknown]
  - Arthritis [Unknown]
